FAERS Safety Report 14987991 (Version 1)
Quarter: 2018Q2

REPORT INFORMATION
  Report Type: Spontaneous
  Country: US (occurrence: US)
  Receive Date: 20180516
  Receipt Date: 20180516
  Transmission Date: 20180711
  Serious: Yes (Hospitalization)
  Sender: FDA-Public Use
  Company Number: None

PATIENT
  Age: 45 Year
  Sex: Male

DRUGS (23)
  1. NAPROXEN. [Concomitant]
     Active Substance: NAPROXEN
  2. ASPIRIN. [Concomitant]
     Active Substance: ASPIRIN
  3. AMOXICILLIN. [Concomitant]
     Active Substance: AMOXICILLIN
  4. CARVEDILOL. [Concomitant]
     Active Substance: CARVEDILOL
  5. MUPIROCIN. [Concomitant]
     Active Substance: MUPIROCIN
  6. AZITHROMYCIN ANHYDROUS. [Concomitant]
     Active Substance: AZITHROMYCIN ANHYDROUS
  7. LIAINOPRIL [Concomitant]
  8. ATORVASTATIN [Concomitant]
     Active Substance: ATORVASTATIN
  9. SPIRONOLACT [Concomitant]
     Active Substance: SPIRONOLACTONE
  10. LISINOPRIL AND HYDROCHLOROTHIAZIDE [Concomitant]
     Active Substance: HYDROCHLOROTHIAZIDE\LISINOPRIL
  11. ENTRESTO [Concomitant]
     Active Substance: SACUBITRIL\VALSARTAN
  12. METRONIDAZOL [Concomitant]
     Active Substance: METRONIDAZOLE
  13. OXYCODO/APAP [Concomitant]
  14. TALTZ [Suspect]
     Active Substance: IXEKIZUMAB
     Indication: PSORIASIS
     Dosage: ?          OTHER ROUTE:BY DOCTOR?
     Dates: start: 20161031
  15. FUROSEMIDE. [Concomitant]
     Active Substance: FUROSEMIDE
  16. FLUTICASONE. [Concomitant]
     Active Substance: FLUTICASONE
  17. PRVENTIL [Concomitant]
  18. CYCLOBENZAPR [Concomitant]
     Active Substance: CYCLOBENZAPRINE
  19. SMZ/TMP [Concomitant]
     Active Substance: SULFAMETHOXAZOLE\TRIMETHOPRIM
  20. MODAFINIL. [Concomitant]
     Active Substance: MODAFINIL
  21. BETAMETH DIP [Concomitant]
  22. VANOS CRE [Concomitant]
  23. METFORMIN [Concomitant]
     Active Substance: METFORMIN HYDROCHLORIDE

REACTIONS (1)
  - Myocardial infarction [None]

NARRATIVE: CASE EVENT DATE: 201805
